FAERS Safety Report 7810927-6 (Version None)
Quarter: 2011Q4

REPORT INFORMATION
  Report Type: 
  Country: None (occurrence: None)
  Receive Date: 20111013
  Receipt Date: 20111006
  Transmission Date: 20120403
  Serious: No
  Sender: FDA-Public Use
  Company Number: US-PFIZER INC-2011240038

PATIENT
  Sex: Female

DRUGS (2)
  1. PRISTIQ [Suspect]
     Indication: MAJOR DEPRESSION
     Dosage: 50 MG, UNK
     Dates: end: 20110901
  2. PRISTIQ [Suspect]
     Dosage: 100 MG, UNK
     Dates: start: 20110901

REACTIONS (2)
  - EYE INFECTION [None]
  - DEPRESSION [None]
